FAERS Safety Report 9824751 (Version 5)
Quarter: 2014Q4

REPORT INFORMATION
  Report Type: Report from Study
  Country: US (occurrence: US)
  Receive Date: 20140117
  Receipt Date: 20141215
  Transmission Date: 20150529
  Serious: Yes (Life-Threatening, Hospitalization)
  Sender: FDA-Public Use
  Company Number: US-ROCHE-1317161

PATIENT
  Age: 56 Year
  Sex: Female
  Weight: 69.5 kg

DRUGS (26)
  1. TOCILIZUMAB [Suspect]
     Active Substance: TOCILIZUMAB
     Indication: RHEUMATOID ARTHRITIS
     Dosage: LAST DOSE:21/NOV/2013
     Route: 042
     Dates: start: 20130516
  2. NEOSTIGMINE METHYLSULPHATE [Concomitant]
  3. SULFASALAZINE. [Concomitant]
     Active Substance: SULFASALAZINE
     Route: 048
     Dates: start: 20140225, end: 201410
  4. FENTANYL. [Concomitant]
     Active Substance: FENTANYL
     Route: 065
     Dates: start: 20131205, end: 20131205
  5. ATENOLOL. [Concomitant]
     Active Substance: ATENOLOL
     Route: 048
     Dates: start: 20130520
  6. MORPHINE SULFATE. [Concomitant]
     Active Substance: MORPHINE SULFATE
     Indication: CHEST PAIN
     Route: 065
     Dates: start: 20130517, end: 20130517
  7. ZEMURON [Concomitant]
     Active Substance: ROCURONIUM BROMIDE
     Route: 065
     Dates: start: 20131205, end: 20131205
  8. ORENCIA [Concomitant]
     Active Substance: ABATACEPT
     Route: 042
     Dates: start: 20141119
  9. TUMS [Concomitant]
     Active Substance: CALCIUM CARBONATE
     Indication: GASTROOESOPHAGEAL REFLUX DISEASE
     Dosage: 2 TABLETS
     Route: 048
     Dates: start: 201305
  10. METHOTREXATE [Concomitant]
     Active Substance: METHOTREXATE
     Indication: RHEUMATOID ARTHRITIS
     Route: 065
     Dates: start: 20131203, end: 20131204
  11. SENNA [Concomitant]
     Active Substance: SENNA LEAF\SENNOSIDES\SENNOSIDES A AND B
     Route: 065
     Dates: start: 20131210
  12. ISOVUE 300 [Concomitant]
     Active Substance: IOPAMIDOL
     Route: 065
     Dates: start: 20131205, end: 20131205
  13. DESFLURANE. [Concomitant]
     Active Substance: DESFLURANE
     Route: 065
     Dates: start: 20131205, end: 20131205
  14. PROTONIX (OMEPRAZOLE) [Concomitant]
     Route: 065
     Dates: start: 20131205, end: 20131207
  15. IBUPROFEN. [Concomitant]
     Active Substance: IBUPROFEN
     Indication: RHEUMATOID ARTHRITIS
     Route: 048
     Dates: start: 2006
  16. TYLENOL WITH CODEINE [Concomitant]
     Active Substance: ACETAMINOPHEN\CODEINE PHOSPHATE
     Indication: RHEUMATOID ARTHRITIS
     Route: 048
     Dates: start: 2011
  17. FOLIC ACID. [Concomitant]
     Active Substance: FOLIC ACID
     Route: 065
     Dates: start: 20131203, end: 20131204
  18. ATOVAN [Concomitant]
     Route: 065
     Dates: start: 20131205, end: 20131206
  19. ATENOLOL. [Concomitant]
     Active Substance: ATENOLOL
     Route: 048
     Dates: start: 20130507, end: 20130520
  20. PREDNISONE. [Concomitant]
     Active Substance: PREDNISONE
     Route: 065
  21. SUCCINYLCHOLINE [Concomitant]
     Active Substance: SUCCINYLCHOLINE
     Route: 065
     Dates: start: 20131205, end: 20131205
  22. ENBREL [Concomitant]
     Active Substance: ETANERCEPT
     Route: 058
     Dates: start: 20140721, end: 20141028
  23. ASPIRIN. [Concomitant]
     Active Substance: ASPIRIN
     Indication: PROPHYLAXIS
     Route: 048
     Dates: start: 201302
  24. PERCOCET [Concomitant]
     Active Substance: ACETAMINOPHEN\OXYCODONE HYDROCHLORIDE
     Indication: RHEUMATOID ARTHRITIS
     Route: 048
     Dates: start: 2011
  25. LISINOPRIL. [Concomitant]
     Active Substance: LISINOPRIL
     Indication: HYPERTENSION
     Route: 048
     Dates: start: 201302, end: 20130506
  26. MORPHINE [Concomitant]
     Active Substance: MORPHINE
     Route: 065
     Dates: start: 20131205, end: 20131206

REACTIONS (2)
  - Sepsis [Recovered/Resolved with Sequelae]
  - Enterocolitis [Recovered/Resolved]

NARRATIVE: CASE EVENT DATE: 20131203
